FAERS Safety Report 13949299 (Version 4)
Quarter: 2017Q4

REPORT INFORMATION
  Report Type: Spontaneous
  Country: US (occurrence: US)
  Receive Date: 20170908
  Receipt Date: 20171101
  Transmission Date: 20180320
  Serious: Yes (Other)
  Sender: FDA-Public Use
  Company Number: US-GLAXOSMITHKLINE-US2017139378

PATIENT
  Sex: Female

DRUGS (9)
  1. NEBULIZED ALBUTEROL [Concomitant]
     Active Substance: ALBUTEROL
  2. EXEMESTANE. [Concomitant]
     Active Substance: EXEMESTANE
  3. XGEVA [Concomitant]
     Active Substance: DENOSUMAB
  4. FLONASE [Concomitant]
     Active Substance: FLUTICASONE PROPIONATE
  5. ADVAIR DISKUS [Suspect]
     Active Substance: FLUTICASONE PROPIONATE\SALMETEROL XINAFOATE
     Indication: ASTHMA
     Dosage: 1 PUFF(S), BID
     Route: 055
     Dates: start: 2010
  6. BREO ELLIPTA [Suspect]
     Active Substance: FLUTICASONE FUROATE\VILANTEROL TRIFENATATE
     Indication: ASTHMA
     Dosage: 1 PUFF(S), QD
     Route: 055
     Dates: start: 2017
  7. PROVENTIL [Concomitant]
     Active Substance: ALBUTEROL
  8. HYDROCHLOROTHIAZIDE. [Concomitant]
     Active Substance: HYDROCHLOROTHIAZIDE
  9. ADVAIR DISKUS [Suspect]
     Active Substance: FLUTICASONE PROPIONATE\SALMETEROL XINAFOATE
     Dosage: UNK
     Route: 055

REACTIONS (11)
  - Productive cough [Not Recovered/Not Resolved]
  - Wheezing [Not Recovered/Not Resolved]
  - Nasopharyngitis [Unknown]
  - Drug ineffective [Not Recovered/Not Resolved]
  - Asthma [Unknown]
  - Cough [Not Recovered/Not Resolved]
  - Gastrooesophageal reflux disease [Unknown]
  - Bronchitis [Unknown]
  - Pneumonia [Unknown]
  - Ill-defined disorder [Not Recovered/Not Resolved]
  - Multiple allergies [Unknown]

NARRATIVE: CASE EVENT DATE: 2017
